FAERS Safety Report 21405675 (Version 2)
Quarter: 2024Q2

REPORT INFORMATION
  Report Type: Report from Study
  Country: BR (occurrence: BR)
  Receive Date: 20221004
  Receipt Date: 20240503
  Transmission Date: 20240715
  Serious: Yes (Other)
  Sender: FDA-Public Use
  Company Number: BR-CELLTRION INC.-2022BR015884

PATIENT

DRUGS (1)
  1. INFLIXIMAB [Suspect]
     Active Substance: INFLIXIMAB
     Indication: Behcet^s syndrome
     Route: 042

REACTIONS (7)
  - Uveitis [Unknown]
  - Pneumonia [Unknown]
  - Ill-defined disorder [Unknown]
  - Skin papilloma [Unknown]
  - Pyrexia [Unknown]
  - Off label use [Unknown]
  - Intentional dose omission [Unknown]
